FAERS Safety Report 5777715-6 (Version None)
Quarter: 2008Q2

REPORT INFORMATION
  Report Type: 
  Country: None (occurrence: None)
  Receive Date: 20080618
  Receipt Date: 20080124
  Transmission Date: 20081010
  Serious: No
  Sender: FDA-Public Use
  Company Number: US-BOEHRINGER INGELHEIM GMBH, GERMANY-2005-BP-11730BP

PATIENT
  Sex: Male
  Weight: 66 kg

DRUGS (13)
  1. MIRAPEX [Suspect]
     Indication: PARKINSON'S DISEASE
     Route: 048
     Dates: start: 19970721, end: 20041201
  2. SINEMET CR [Concomitant]
     Dates: start: 19991101
  3. PAXIL [Concomitant]
     Dates: start: 20010509
  4. NEO/POLY/HC [Concomitant]
     Dates: start: 20020110
  5. COMTAN [Concomitant]
     Dates: start: 20020321
  6. CLONAZEPAM [Concomitant]
     Dates: start: 20030101
  7. CARBIDOPA/LEVODOPA ER [Concomitant]
     Dates: start: 20030325
  8. AMOXYCILLIN/CLAVULANTE [Concomitant]
     Dates: start: 20030626
  9. AUGMENTIN XR SR 12HR [Concomitant]
     Dates: start: 20030629
  10. DOXYCYCLINE HCL [Concomitant]
     Dates: start: 20030702
  11. SEROQUEL [Concomitant]
     Dates: start: 20030729
  12. PREDNISOLONE OP SUS [Concomitant]
     Dates: start: 20040527
  13. PROXETINE [Concomitant]

REACTIONS (2)
  - GAMBLING [None]
  - HYPERSEXUALITY [None]
